FAERS Safety Report 6168161-4 (Version None)
Quarter: 2009Q2

REPORT INFORMATION
  Report Type: 
  Country: None (occurrence: None)
  Receive Date: 20090423
  Receipt Date: 20090423
  Transmission Date: 20091009
  Serious: No
  Sender: FDA-Public Use
  Company Number: None

PATIENT
  Age: 44 Year
  Sex: Female
  Weight: 47.6277 kg

DRUGS (1)
  1. LEXAPRO [Suspect]
     Indication: DEPRESSION
     Dosage: 10MG 1 TABLET DAILY PO
     Route: 048
     Dates: start: 20090412, end: 20090414

REACTIONS (13)
  - ANXIETY [None]
  - CONFUSIONAL STATE [None]
  - CRYING [None]
  - EYE DISORDER [None]
  - FEAR [None]
  - FORMICATION [None]
  - HEART RATE INCREASED [None]
  - HYPERACUSIS [None]
  - IMPAIRED DRIVING ABILITY [None]
  - MENTAL IMPAIRMENT [None]
  - NAUSEA [None]
  - PHOTOPHOBIA [None]
  - TREMOR [None]
